FAERS Safety Report 9048692 (Version 1)
Quarter: 2013Q1

REPORT INFORMATION
  Report Type: Spontaneous
  Country: US (occurrence: None)
  Receive Date: 20130130
  Receipt Date: 20130130
  Transmission Date: 20140127
  Serious: No
  Sender: FDA-Public Use
  Company Number: None

PATIENT
  Age: 19 Year
  Sex: Female
  Weight: 52.4 kg

DRUGS (1)
  1. ZYPREXA 10MG [Suspect]
     Dosage: QHS
     Route: 048
     Dates: start: 20121224, end: 20121226

REACTIONS (1)
  - Gait disturbance [None]
